FAERS Safety Report 9287176 (Version 2)
Quarter: 2013Q4

REPORT INFORMATION
  Report Type: Spontaneous
  Country: US (occurrence: US)
  Receive Date: 20130513
  Receipt Date: 20131031
  Transmission Date: 20140711
  Serious: Yes (Hospitalization)
  Sender: FDA-Public Use
  Company Number: US-B.I. PHARMACEUTICALS,INC./RIDGEFIELD-2013-BI-13191BP

PATIENT
  Sex: Female
  Weight: 68.04 kg

DRUGS (7)
  1. PRADAXA [Suspect]
     Indication: ANTICOAGULANT THERAPY
     Dosage: 300 MG
     Dates: start: 20120414, end: 20120820
  2. PRADAXA [Suspect]
     Indication: ATRIAL FIBRILLATION
  3. PLAVIX [Suspect]
     Dosage: 75 MG
     Dates: start: 1992, end: 20120820
  4. AMIODARONE [Concomitant]
     Dosage: 200 MG
     Dates: start: 20120414
  5. LIPITOR [Concomitant]
     Dosage: 40 MG
     Dates: start: 1992
  6. TENORMIN [Concomitant]
     Dosage: 100 MG
     Dates: start: 1992
  7. VASOTEC [Concomitant]
     Dosage: 10 MG
     Dates: start: 1992

REACTIONS (2)
  - Gastrointestinal haemorrhage [Unknown]
  - Anaemia [Unknown]
